FAERS Safety Report 15879252 (Version 1)
Quarter: 2019Q1

REPORT INFORMATION
  Report Type: Spontaneous
  Country: US (occurrence: US)
  Receive Date: 20190126
  Receipt Date: 20190126
  Transmission Date: 20190417
  Serious: Yes (Life-Threatening, Disabling, Other)
  Sender: FDA-Public Use
  Company Number: None

PATIENT
  Age: 61 Year
  Sex: Female
  Weight: 53.1 kg

DRUGS (3)
  1. OLMESARTAN MEDOXOMIL 40MG TABLETS, ROUND WHITE TABLET, M, 124 [Suspect]
     Active Substance: OLMESARTAN MEDOXOMIL
     Indication: HYPERTENSION
     Dosage: ?          QUANTITY:1 TABLET(S);?
     Route: 048
     Dates: start: 20171101, end: 20180724
  2. OLMESARTAN MEDOXOMIL 40MG TABLETS, ROUND WHITE TABLET, M, 124 [Suspect]
     Active Substance: OLMESARTAN MEDOXOMIL
     Indication: PROTEINURIA
     Dosage: ?          QUANTITY:1 TABLET(S);?
     Route: 048
     Dates: start: 20171101, end: 20180724
  3. OLMESARTAN MEDOXOMIL 40MG TABLETS, ROUND WHITE TABLET, M, 124 [Suspect]
     Active Substance: OLMESARTAN MEDOXOMIL
     Indication: RENAL DISORDER
     Dosage: ?          QUANTITY:1 TABLET(S);?
     Route: 048
     Dates: start: 20171101, end: 20180724

REACTIONS (5)
  - Weight decreased [None]
  - Dehydration [None]
  - Diarrhoea [None]
  - Presyncope [None]
  - Suspected product contamination [None]

NARRATIVE: CASE EVENT DATE: 20180724
